FAERS Safety Report 5319224-4 (Version None)
Quarter: 2007Q1

REPORT INFORMATION
  Report Type: 
  Country: None (occurrence: None)
  Receive Date: 20070202
  Receipt Date: 20060824
  Transmission Date: 20070707
  Serious: No
  Sender: FDA-Public Use
  Company Number: 255768

PATIENT
  Age: 74 Year
  Sex: Female
  Weight: 68 kg

DRUGS (7)
  1. NOVOLOG [Suspect]
     Indication: INSULIN-REQUIRING TYPE II DIABETES MELLITUS
     Dosage: SEE IMAGE
     Route: 058
     Dates: start: 20050701, end: 20060501
  2. NOVOLOG [Suspect]
     Indication: INSULIN-REQUIRING TYPE II DIABETES MELLITUS
     Dosage: SEE IMAGE
     Route: 058
     Dates: start: 20060801, end: 20060801
  3. GLUCOTROL XL [Concomitant]
  4. ACTOS /01460201/ (PIOGLITAZONE) [Concomitant]
  5. SINGULAIR /01362601/(MONTELUKAST) [Concomitant]
  6. ASPIRIN [Concomitant]
  7. ENALAPRIL (ENALAPRIL) [Concomitant]

REACTIONS (1)
  - HYPERSENSITIVITY [None]
